FAERS Safety Report 7578468-1 (Version None)
Quarter: 2011Q2

REPORT INFORMATION
  Report Type: 
  Country: None (occurrence: None)
  Receive Date: 20110628
  Receipt Date: 20110620
  Transmission Date: 20111010
  Serious: Yes (Death, Hospitalization)
  Sender: FDA-Public Use
  Company Number: TW-CELGENEUS-153-C5013-11052877

PATIENT
  Sex: Male
  Weight: 76.6 kg

DRUGS (24)
  1. NYSTATIN [Concomitant]
     Route: 002
     Dates: start: 20110408
  2. MEGEST [Concomitant]
     Route: 048
     Dates: start: 20110425, end: 20110428
  3. HEPARIN [Concomitant]
     Dosage: 5000
     Route: 065
     Dates: start: 20110505, end: 20110505
  4. SANDIMMUNE [Concomitant]
     Indication: PROPHYLAXIS
     Route: 048
     Dates: start: 20110408
  5. HARNALIDGE [Concomitant]
     Route: 048
     Dates: start: 20110425, end: 20110428
  6. REVLIMID [Suspect]
     Indication: MULTIPLE MYELOMA
     Dosage: 15 MILLIGRAM
     Route: 048
     Dates: start: 20110512
  7. ALLEGRA [Concomitant]
  8. ULTRACET [Concomitant]
     Indication: ABDOMINAL PAIN
     Route: 048
  9. VALCYTE [Concomitant]
     Indication: PROPHYLAXIS
     Route: 048
     Dates: start: 20110425
  10. HEPARIN [Concomitant]
     Dosage: 5000
     Route: 065
     Dates: start: 20110512, end: 20110512
  11. ALLOPURINOL [Concomitant]
     Dosage: 100 MILLIGRAM
     Route: 048
     Dates: start: 20110505
  12. BACIDE [Concomitant]
     Indication: ANTI-INFECTIVE THERAPY
     Route: 048
     Dates: start: 20110408
  13. ULSAFE [Concomitant]
     Indication: PEPTIC ULCER
     Dosage: 150 MILLIGRAM
     Route: 048
     Dates: start: 20110509, end: 20110522
  14. DILTIAZEM HCL [Concomitant]
     Indication: PROPHYLAXIS
     Dosage: 90 MILLIGRAM
     Route: 048
     Dates: start: 20110505, end: 20110511
  15. REVLIMID [Suspect]
     Dosage: 15 MILLIGRAM
     Route: 048
     Dates: start: 20110609, end: 20110617
  16. ATIVAN [Concomitant]
     Indication: INSOMNIA
     Route: 048
     Dates: start: 20110425, end: 20110428
  17. HEPARIN [Concomitant]
     Indication: ANTICOAGULANT THERAPY
     Dosage: 5000
     Route: 065
     Dates: start: 20110428, end: 20110428
  18. MOSAPRIDE [Concomitant]
     Indication: GASTROINTESTINAL HYPOMOTILITY
     Dosage: 5 MILLIGRAM
     Route: 048
     Dates: start: 20110505, end: 20110522
  19. DORISON [Concomitant]
     Indication: MULTIPLE MYELOMA
     Dosage: 40 MILLIGRAM
     Route: 048
     Dates: start: 20110214
  20. PARMASON [Concomitant]
     Route: 002
     Dates: start: 20110408
  21. ALLEGRA [Concomitant]
     Indication: RASH
     Route: 048
     Dates: start: 20110425, end: 20110428
  22. ULTRACET [Concomitant]
     Indication: BACK PAIN
     Route: 048
     Dates: start: 20110425, end: 20110428
  23. NAVOBAN [Concomitant]
     Dosage: 5 MILLIGRAM
     Route: 048
     Dates: start: 20110505, end: 20110509
  24. DEPYRETIN [Concomitant]
     Indication: BACK PAIN
     Route: 048
     Dates: start: 20110425, end: 20110428

REACTIONS (3)
  - DIARRHOEA [None]
  - RENAL FAILURE ACUTE [None]
  - DEHYDRATION [None]
